FAERS Safety Report 7530150-2 (Version None)
Quarter: 2011Q2

REPORT INFORMATION
  Report Type: 
  Country: None (occurrence: None)
  Receive Date: 20110526
  Receipt Date: 20110520
  Transmission Date: 20111010
  Serious: Yes (Other)
  Sender: FDA-Public Use
  Company Number: 2011SP023427

PATIENT
  Age: 1 Day

DRUGS (2)
  1. NUVARING [Suspect]
     Indication: PRODUCT USED FOR UNKNOWN INDICATION
     Dosage: 1 DF;
     Dates: start: 20020101, end: 20060101
  2. NUVARING [Suspect]
     Indication: PRODUCT USED FOR UNKNOWN INDICATION
     Dosage: 1 DF;
     Dates: start: 20060101

REACTIONS (6)
  - PREGNANCY WITH CONTRACEPTIVE DEVICE [None]
  - PLACENTAL DISORDER [None]
  - DRUG EXPOSURE DURING PREGNANCY [None]
  - PREMATURE DELIVERY [None]
  - CORTICAL LAMINAR NECROSIS [None]
  - PLACENTAL HYPERTROPHY [None]
